FAERS Safety Report 8058502-5 (Version None)
Quarter: 2012Q1

REPORT INFORMATION
  Report Type: 
  Country: None (occurrence: None)
  Receive Date: 20120120
  Receipt Date: 20120116
  Transmission Date: 20120608
  Serious: Yes (Hospitalization)
  Sender: FDA-Public Use
  Company Number: BR-PFIZER INC-2011260622

PATIENT
  Age: 70 Year
  Sex: Female
  Weight: 70 kg

DRUGS (8)
  1. PANTOPRAZOLE [Concomitant]
     Indication: GASTRITIS
     Dosage: 40 MG, ONCE DAILY (FASTING)
  2. VARENICLINE TARTRATE [Suspect]
     Dosage: 1 MG, 2X/DAY
     Route: 048
     Dates: start: 20111001, end: 20111101
  3. LOSARTAN POTASSIUM [Concomitant]
     Indication: HYPERTENSION
     Dosage: UNK
     Dates: start: 20070101
  4. METFORMIN HYDROCHLORIDE [Concomitant]
     Indication: DIABETES MELLITUS
     Dosage: 850 MG, 2X/DAY
     Dates: start: 20070101
  5. ARADOIS H [Concomitant]
     Indication: BLOOD PRESSURE ABNORMAL
     Dosage: 50 MG, 1X/DAY
  6. LIPITOR [Concomitant]
     Indication: BLOOD CHOLESTEROL ABNORMAL
     Dosage: 40 MG, ONCE DAILY (AT NIGHT)
     Dates: start: 20070101
  7. CLONAZEPAM [Concomitant]
     Indication: SLEEP DISORDER
     Dosage: 12 DROPS (UNSPECIFIED DOSAGE) ONCE DAILY, AT NIGHT
  8. VARENICLINE TARTRATE [Suspect]
     Indication: SMOKING CESSATION THERAPY
     Dosage: UNK
     Route: 048
     Dates: start: 20111018, end: 20111001

REACTIONS (5)
  - HYPOPHAGIA [None]
  - NAUSEA [None]
  - ARTHROPATHY [None]
  - INCREASED APPETITE [None]
  - ARTHRALGIA [None]
